FAERS Safety Report 15851917 (Version 1)
Quarter: 2019Q1

REPORT INFORMATION
  Report Type: Spontaneous
  Country: CN (occurrence: CN)
  Receive Date: 20190122
  Receipt Date: 20190122
  Transmission Date: 20190417
  Serious: Yes (Other)
  Sender: FDA-Public Use
  Company Number: CN-ROCHE-2248687

PATIENT
  Age: 54 Year
  Sex: Male
  Weight: 59.8 kg

DRUGS (6)
  1. IRINOTECAN HYDROCHLORIDE. [Suspect]
     Active Substance: IRINOTECAN HYDROCHLORIDE
     Indication: COLON CANCER
     Dosage: NORMAL SALINE 250ML FOR 2 HOURS
     Route: 041
     Dates: start: 20190110, end: 20190110
  2. LEUCOVORIN. [Concomitant]
     Active Substance: LEUCOVORIN
     Route: 065
     Dates: start: 20190110
  3. AVASTIN [Suspect]
     Active Substance: BEVACIZUMAB
     Indication: COLON CANCER
     Dosage: 100ML NORMAL SALINE FOR 90 MINUTES
     Route: 042
     Dates: start: 20190110, end: 20190110
  4. FLUOROURACIL. [Suspect]
     Active Substance: FLUOROURACIL
     Indication: COLON CANCER
     Dosage: NORMAL SALINE 50ML FOR 10 MINUTES
     Route: 042
  5. FLUOROURACIL. [Suspect]
     Active Substance: FLUOROURACIL
     Dosage: 1940 MG FOR 24 HOURS
     Route: 041
     Dates: start: 20190110, end: 20190111
  6. CEFTAZIDIME. [Concomitant]
     Active Substance: CEFTAZIDIME
     Dosage: NORMAL SALINE 100ML (100ML/H) ONCE PER 12 HOURS
     Route: 065

REACTIONS (3)
  - Bone marrow failure [Recovering/Resolving]
  - White blood cell count decreased [Recovering/Resolving]
  - Neutrophil count decreased [Recovering/Resolving]

NARRATIVE: CASE EVENT DATE: 20190113
